FAERS Safety Report 5303171-8 (Version None)
Quarter: 2007Q2

REPORT INFORMATION
  Report Type: 
  Country: None (occurrence: None)
  Receive Date: 20070420
  Receipt Date: 20070413
  Transmission Date: 20071010
  Serious: Yes (Hospitalization)
  Sender: FDA-Public Use
  Company Number: 2007CG00605

PATIENT
  Age: 82 Year
  Sex: Female

DRUGS (12)
  1. NEXIUM [Suspect]
     Route: 048
     Dates: start: 20070225, end: 20070306
  2. NEXIUM [Suspect]
     Route: 048
     Dates: start: 20070307, end: 20070310
  3. AUGMENTIN '125' [Suspect]
     Route: 048
  4. TRIFLUCAN [Suspect]
     Route: 048
     Dates: end: 20070303
  5. AZATHIOPRINE SODIUM [Suspect]
     Indication: PROCTOCOLITIS
     Route: 048
     Dates: end: 20070225
  6. CORTANCYL [Suspect]
     Indication: PROCTOCOLITIS
     Route: 048
  7. CHRONADALATE [Suspect]
     Route: 048
  8. ACTISKENAN [Concomitant]
  9. LOVENOX [Concomitant]
  10. GELOX [Concomitant]
  11. NOVONORM [Concomitant]
     Route: 048
  12. COZAAR [Concomitant]
     Route: 048

REACTIONS (1)
  - NEUTROPENIA [None]
